FAERS Safety Report 6892126-8 (Version None)
Quarter: 2010Q3

REPORT INFORMATION
  Report Type: 
  Country: None (occurrence: None)
  Receive Date: 20100731
  Receipt Date: 20080131
  Transmission Date: 20110219
  Serious: Yes (Hospitalization, Other)
  Sender: FDA-Public Use
  Company Number: US-PFIZER INC-2007064474

PATIENT
  Sex: Male
  Weight: 88.5 kg

DRUGS (6)
  1. NEURONTIN [Suspect]
     Indication: NERVE INJURY
     Dates: start: 20020101, end: 20050101
  2. PERCOCET [Concomitant]
  3. ULTRAM [Concomitant]
  4. CLONAZEPAM [Concomitant]
  5. ANTIDEPRESSANTS [Concomitant]
  6. ANTICOAGULANTS [Concomitant]

REACTIONS (4)
  - FATIGUE [None]
  - MALAISE [None]
  - PNEUMONIA [None]
  - PULMONARY OEDEMA [None]
